FAERS Safety Report 11713824 (Version 1)
Quarter: 2015Q4

REPORT INFORMATION
  Report Type: Spontaneous
  Country: IN (occurrence: IN)
  Receive Date: 20151109
  Receipt Date: 20151109
  Transmission Date: 20160304
  Serious: Yes (Other)
  Sender: FDA-Public Use
  Company Number: PHHY2015IN140662

PATIENT
  Age: 35 Year
  Sex: Male

DRUGS (11)
  1. RISPERIDONE. [Suspect]
     Active Substance: RISPERIDONE
     Dosage: 4 MG, UNK
     Route: 065
  2. TRIFLUOPERAZINE [Suspect]
     Active Substance: TRIFLUOPERAZINE\TRIFLUOPERAZINE HYDROCHLORIDE
     Indication: SCHIZOPHRENIA, PARANOID TYPE
     Route: 065
  3. CLOZAPINE. [Suspect]
     Active Substance: CLOZAPINE
     Dosage: 150 MG (GRADUALLY TITRATED UP TO), UNK
     Route: 065
  4. OLANZAPINE. [Suspect]
     Active Substance: OLANZAPINE
     Indication: SCHIZOPHRENIA, PARANOID TYPE
     Route: 065
  5. RISPERIDONE. [Suspect]
     Active Substance: RISPERIDONE
     Dosage: UNK
     Route: 065
  6. CLOZAPINE. [Suspect]
     Active Substance: CLOZAPINE
     Indication: SCHIZOPHRENIA, PARANOID TYPE
     Dosage: 25 MG, UNK
     Route: 065
  7. RISPERIDONE. [Suspect]
     Active Substance: RISPERIDONE
     Dosage: 4 MG, UNK
     Route: 065
  8. RISPERIDONE. [Suspect]
     Active Substance: RISPERIDONE
     Indication: SCHIZOPHRENIA, PARANOID TYPE
     Dosage: UNK
     Route: 065
  9. RISPERIDONE. [Suspect]
     Active Substance: RISPERIDONE
     Dosage: UNK
     Route: 065
  10. CLOZAPINE. [Suspect]
     Active Substance: CLOZAPINE
     Dosage: UNK
     Route: 065
  11. CLOZAPINE. [Suspect]
     Active Substance: CLOZAPINE
     Dosage: 150 MG, UNK
     Route: 065

REACTIONS (4)
  - Sedation [Recovered/Resolved]
  - Psychotic disorder [Recovered/Resolved]
  - Therapeutic response decreased [Unknown]
  - Enuresis [Recovered/Resolved]

NARRATIVE: CASE EVENT DATE: 201302
